FAERS Safety Report 4439793-6 (Version None)
Quarter: 2004Q3

REPORT INFORMATION
  Report Type: 
  Country: None (occurrence: None)
  Receive Date: 20040831
  Receipt Date: 20040825
  Transmission Date: 20050211
  Serious: Yes (Hospitalization, Other)
  Sender: FDA-Public Use
  Company Number: 2004IC000841

PATIENT
  Age: 67 Year
  Sex: Female

DRUGS (11)
  1. FLUOROURACIL [Suspect]
     Indication: BREAST CANCER
     Dosage: 750 MG; INTRAVENOUS
     Route: 042
     Dates: start: 20040223, end: 20040329
  2. EPIRUBICIN [Suspect]
     Indication: BREAST CANCER
     Dosage: 40 MG; INTRAVENOUS
     Route: 042
     Dates: start: 20040223, end: 20040329
  3. CYCLOPHOSPHAMIDE [Suspect]
     Indication: BREAST CANCER
     Dosage: 500 MG; INTRAVENOUS
     Route: 042
     Dates: start: 20040223, end: 20040329
  4. RINDERON [Concomitant]
  5. SEROTONE [Concomitant]
  6. ANASTROZOLE [Concomitant]
  7. WARFARIN SODIUM [Concomitant]
  8. ATP [Concomitant]
  9. CEROCRAL [Concomitant]
  10. OSTELUC [Concomitant]
  11. TERNELIN [Concomitant]

REACTIONS (1)
  - LUNG DISORDER [None]
